FAERS Safety Report 10479801 (Version 1)
Quarter: 2014Q3

REPORT INFORMATION
  Report Type: Spontaneous
  Country: US (occurrence: US)
  Receive Date: 20140928
  Receipt Date: 20140928
  Transmission Date: 20150326
  Serious: No
  Sender: FDA-Public Use
  Company Number: US-009507513-1409USA006528

PATIENT
  Sex: Female

DRUGS (7)
  1. ZOCOR [Suspect]
     Active Substance: SIMVASTATIN
     Route: 048
  2. VALTREX [Concomitant]
     Active Substance: VALACYCLOVIR HYDROCHLORIDE
  3. CRESTOR [Concomitant]
     Active Substance: ROSUVASTATIN CALCIUM
     Dosage: 10MG
  4. NEXIUM [Concomitant]
     Active Substance: ESOMEPRAZOLE MAGNESIUM
     Dosage: 20MG
  5. PREMARIN VAGINAL [Concomitant]
     Active Substance: ESTROGENS, CONJUGATED
     Dosage: APPLY 1 GRAM VAGINALLY ONCE A DAY IN THE EVENING
     Route: 067
  6. QVAR [Concomitant]
     Active Substance: BECLOMETHASONE DIPROPIONATE
     Dosage: 80 MCG
  7. NAPROXEN. [Concomitant]
     Active Substance: NAPROXEN
     Dosage: 500MG

REACTIONS (1)
  - Drug hypersensitivity [Unknown]
